FAERS Safety Report 7270851-7 (Version None)
Quarter: 2011Q1

REPORT INFORMATION
  Report Type: 
  Country: None (occurrence: None)
  Receive Date: 20110202
  Receipt Date: 20110131
  Transmission Date: 20110831
  Serious: Yes (Other)
  Sender: FDA-Public Use
  Company Number: CH-AMGEN-CHESP2011000053

PATIENT
  Age: 74 Year
  Weight: 75 kg

DRUGS (2)
  1. CONVERSUM [Concomitant]
     Indication: HYPERTENSION
     Dosage: 5 A?G, QD
     Route: 048
  2. NPLATE [Suspect]
     Indication: IDIOPATHIC THROMBOCYTOPENIC PURPURA
     Dosage: 250 A?G, UNK
     Route: 058

REACTIONS (1)
  - DEPRESSION [None]
